FAERS Safety Report 25934940 (Version 2)
Quarter: 2025Q4

REPORT INFORMATION
  Report Type: Report from Study
  Country: US (occurrence: None)
  Receive Date: 20251017
  Receipt Date: 20251020
  Transmission Date: 20260118
  Serious: Yes (Other)
  Sender: UCB
  Company Number: US-UCBSA-2025064919

PATIENT
  Age: 8 Year
  Weight: 24.5 kg

DRUGS (1)
  1. FENFLURAMINE HYDROCHLORIDE [Suspect]
     Active Substance: FENFLURAMINE HYDROCHLORIDE
     Indication: Product used for unknown indication
     Dosage: 0.8 MILLIGRAM/KILOGRAM/DAY (TOTALLY 19.8 MILLIGRAM PER DAY)

REACTIONS (1)
  - Tricuspid valve incompetence [Not Recovered/Not Resolved]
